FAERS Safety Report 6573440-2 (Version None)
Quarter: 2010Q1

REPORT INFORMATION
  Report Type: 
  Country: None (occurrence: None)
  Receive Date: 20100208
  Receipt Date: 20100202
  Transmission Date: 20100710
  Serious: Yes (Other)
  Sender: FDA-Public Use
  Company Number: MX-SANOFI-AVENTIS-2009SA001742

PATIENT
  Age: 65 Year
  Sex: Male

DRUGS (4)
  1. INSULIN GLARGINE [Suspect]
     Indication: DIABETES MELLITUS
     Route: 058
     Dates: start: 20090901
  2. ALL OTHER THERAPEUTIC PRODUCTS [Concomitant]
     Indication: TYPE 2 DIABETES MELLITUS
     Dosage: 4 MG OF GLIMEPIRIDE AND 1000 MG OF METFORMIN
     Route: 048
  3. LYRICA [Concomitant]
     Indication: DIABETIC NEUROPATHY
     Route: 048
  4. MICARDIS HCT [Concomitant]
     Dosage: 80 MG OF TELMISARTAN AND 12.5 MG OF HYDROCHLOROTHIAZIDE
     Route: 048

REACTIONS (1)
  - VISION BLURRED [None]
